FAERS Safety Report 8822384 (Version 1)
Quarter: 2012Q4

REPORT INFORMATION
  Report Type: 
  Country: CA (occurrence: CA)
  Receive Date: 20121003
  Receipt Date: 20121003
  Transmission Date: 20130627
  Serious: Yes (Other)
  Sender: FDA-Public Use
  Company Number: PHHY2012CA085629

PATIENT
  Age: 60 Year
  Sex: Female

DRUGS (4)
  1. ACLASTA [Suspect]
     Indication: OSTEOPOROSIS
     Route: 042
     Dates: start: 20080819
  2. ACLASTA [Suspect]
     Route: 042
     Dates: start: 20090930
  3. ACLASTA [Suspect]
     Route: 042
     Dates: start: 20101004
  4. ACLASTA [Suspect]
     Route: 042
     Dates: start: 20111011

REACTIONS (2)
  - Breast cancer [Unknown]
  - Clostridium difficile infection [Unknown]
